FAERS Safety Report 5082682-7 (Version None)
Quarter: 2006Q3

REPORT INFORMATION
  Report Type: 
  Country: None (occurrence: None)
  Receive Date: 20060816
  Receipt Date: 20060816
  Transmission Date: 20061208
  Serious: No
  Sender: FDA-Public Use
  Company Number: None

PATIENT
  Age: 24 Year
  Sex: Female
  Weight: 57.4707 kg

DRUGS (6)
  1. TRETINOIN [Suspect]
     Indication: ACNE
     Dosage: PEA-SIZED AMOUNT DAILY TOP
     Route: 061
     Dates: start: 20060811, end: 20060815
  2. SEASONALE [Concomitant]
  3. MELATONIN [Concomitant]
  4. VALERIAN ROOT [Concomitant]
  5. CLONIDINE [Concomitant]
  6. MULTI-VITAMIN [Concomitant]

REACTIONS (2)
  - SWELLING FACE [None]
  - URTICARIA [None]
